FAERS Safety Report 5563494-4 (Version None)
Quarter: 2007Q4

REPORT INFORMATION
  Report Type: 
  Country: None (occurrence: None)
  Receive Date: 20071217
  Receipt Date: 20070607
  Transmission Date: 20080405
  Serious: No
  Sender: FDA-Public Use
  Company Number: US-ASTRAZENECA-2007UW13720

PATIENT
  Age: 57 Year
  Sex: Female
  Weight: 99.8 kg

DRUGS (3)
  1. CRESTOR [Suspect]
     Indication: BLOOD CHOLESTEROL
     Route: 048
     Dates: start: 20070413
  2. PREVACID [Concomitant]
  3. EVISTA [Concomitant]

REACTIONS (1)
  - HAIR COLOUR CHANGES [None]
